FAERS Safety Report 7622093-0 (Version None)
Quarter: 2011Q3

REPORT INFORMATION
  Report Type: 
  Country: None (occurrence: None)
  Receive Date: 20110720
  Receipt Date: 20110120
  Transmission Date: 20111222
  Serious: Yes (Hospitalization)
  Sender: FDA-Public Use
  Company Number: US-BAYER-201038343NA

PATIENT
  Age: 42 Year
  Sex: Female
  Weight: 102.4 kg

DRUGS (14)
  1. ASCORBIC ACID [Concomitant]
  2. ZOLPIDEM [Concomitant]
     Dosage: UNK
     Dates: start: 20070101
  3. LEVAQUIN [Concomitant]
  4. ATENOLOL [Concomitant]
  5. MAXZIDE [Concomitant]
  6. YASMIN [Suspect]
     Indication: ACNE
     Dosage: UNK
     Dates: start: 20070101, end: 20070101
  7. DROSPIRENONE AND ETHINYL ESTRADIOL [Suspect]
     Indication: ACNE
  8. HYDROCODONE BITARTRATE AND ACETAMINOPHEN [Concomitant]
     Dosage: UNK
     Dates: start: 20070101
  9. TRIAMTERENE AND HYDROCHLOROTHIAZIDE [Concomitant]
     Indication: DIURETIC THERAPY
     Dosage: UNK
     Dates: start: 20070101
  10. NEXIUM [Concomitant]
     Indication: GASTROOESOPHAGEAL REFLUX DISEASE
  11. ALBUTEROL SULFATE AUTOHALER [Concomitant]
     Indication: ASTHMA
  12. ADVAIR DISKUS 100/50 [Concomitant]
     Indication: ASTHMA
  13. MIDRIN [Concomitant]
     Indication: MIGRAINE
  14. YAZ [Suspect]
     Indication: ACNE
     Dosage: UNK
     Dates: start: 20070101, end: 20070101

REACTIONS (3)
  - DEEP VEIN THROMBOSIS [None]
  - THROMBOSIS [None]
  - INJURY [None]
